FAERS Safety Report 24786047 (Version 1)
Quarter: 2024Q4

REPORT INFORMATION
  Report Type: Spontaneous
  Country: US (occurrence: US)
  Receive Date: 20241229
  Receipt Date: 20241229
  Transmission Date: 20250115
  Serious: No
  Sender: ELI LILLY AND COMPANY
  Company Number: US-ELI_LILLY_AND_COMPANY-US202412017988

PATIENT
  Age: 76 Year
  Sex: Female

DRUGS (2)
  1. TRULICITY [Suspect]
     Active Substance: DULAGLUTIDE
     Indication: Diabetes mellitus
     Dosage: 0.75 MG, UNKNOWN
     Route: 058
     Dates: start: 202301
  2. LANTUS [Concomitant]
     Active Substance: INSULIN GLARGINE
     Indication: Product used for unknown indication
     Dosage: 12 MG, UNKNOWN
     Route: 065

REACTIONS (3)
  - Incorrect dose administered [Not Recovered/Not Resolved]
  - Product dose omission issue [Recovered/Resolved]
  - Injection site haemorrhage [Recovered/Resolved]
